FAERS Safety Report 24205213 (Version 1)
Quarter: 2024Q3

REPORT INFORMATION
  Report Type: Spontaneous
  Country: JP (occurrence: JP)
  Receive Date: 20240813
  Receipt Date: 20240813
  Transmission Date: 20241016
  Serious: Yes (Hospitalization, Other)
  Sender: DAIICHI
  Company Number: JP-DSJP-DSJ-2024-139586

PATIENT
  Age: 6 Decade
  Sex: Female
  Weight: 35.9 kg

DRUGS (4)
  1. CARVEDILOL [Suspect]
     Active Substance: CARVEDILOL
     Indication: Product used for unknown indication
     Dosage: 2.5 MG, BID, AFTER BREAKFAST AND DINNER
     Route: 065
  2. EDOXABAN TOSYLATE [Suspect]
     Active Substance: EDOXABAN TOSYLATE
     Indication: Product used for unknown indication
     Dosage: 30 MG, QD, AFTER BREAKFAST
     Route: 065
  3. OXYCODONE TABLETS 10mg ^DAIICHI SANKYO^ [Concomitant]
     Indication: Pain
     Dosage: 10 MG, AS NEEDED, WHEN PAIN OCCURS
     Route: 065
  4. FENTANYL CITRATE [Concomitant]
     Active Substance: FENTANYL CITRATE
     Indication: Product used for unknown indication
     Dosage: 3 MG, QD, DAYTIME
     Route: 065

REACTIONS (2)
  - Vascular device infection [Unknown]
  - Oesophageal carcinoma [Unknown]
